FAERS Safety Report 8612346-1 (Version None)
Quarter: 2012Q3

REPORT INFORMATION
  Report Type: 
  Country: None (occurrence: None)
  Receive Date: 20120822
  Receipt Date: 20120814
  Transmission Date: 20120928
  Serious: Yes (Other)
  Sender: FDA-Public Use
  Company Number: US-ROXANE LABORATORIES, INC.-2012-RO-01707RO

PATIENT
  Age: 5 Year
  Sex: Female
  Weight: 10 kg

DRUGS (3)
  1. FLECAINIDE ACETATE [Suspect]
     Indication: ATRIAL FLUTTER
     Dosage: 60 MG
     Route: 048
     Dates: start: 20120723
  2. JANTOVEN [Suspect]
     Dosage: 2.2 MG
     Dates: start: 20120701, end: 20120725
  3. AMIODARONE HCL [Concomitant]
     Route: 042
     Dates: start: 20120716

REACTIONS (2)
  - DRUG ADMINISTRATION ERROR [None]
  - INTERNATIONAL NORMALISED RATIO INCREASED [None]
